FAERS Safety Report 21280403 (Version 1)
Quarter: 2022Q3

REPORT INFORMATION
  Report Type: Spontaneous
  Country: DE (occurrence: None)
  Receive Date: 20220901
  Receipt Date: 20220901
  Transmission Date: 20221026
  Serious: Yes (Hospitalization, Other)
  Sender: FDA-Public Use
  Company Number: 2022A297586

PATIENT
  Age: 84 Year
  Sex: Female

DRUGS (1)
  1. DAPAGLIFLOZIN [Suspect]
     Active Substance: DAPAGLIFLOZIN
     Indication: Cardiac failure
     Route: 048

REACTIONS (7)
  - Coronary artery stenosis [Recovered/Resolved]
  - Ejection fraction decreased [Unknown]
  - Ventricular hypokinesia [Unknown]
  - Atrial pressure increased [Unknown]
  - Pulmonary arterial hypertension [Unknown]
  - Cardiac failure [Unknown]
  - Mitral valve incompetence [Unknown]
